FAERS Safety Report 10426210 (Version 1)
Quarter: 2014Q3

REPORT INFORMATION
  Report Type: Spontaneous
  Country: US (occurrence: None)
  Receive Date: 20140725
  Receipt Date: 20140725
  Transmission Date: 20150326
  Serious: No
  Sender: FDA-Public Use
  Company Number: AP356-00617-SPO-US

PATIENT
  Age: 45 Year
  Sex: Female
  Weight: 84 kg

DRUGS (4)
  1. BELVIQ [Suspect]
     Active Substance: LORCASERIN HYDROCHLORIDE
     Indication: WEIGHT DECREASED
     Route: 048
     Dates: start: 20140408, end: 20140408
  2. ALEVE (NAPROXEN SODIUM) [Concomitant]
  3. WELLBUTRIN (BUPROPION) [Concomitant]
  4. IMITREX [Concomitant]
     Active Substance: SUMATRIPTAN\SUMATRIPTAN SUCCINATE

REACTIONS (1)
  - Migraine [None]

NARRATIVE: CASE EVENT DATE: 20140408
